FAERS Safety Report 25402673 (Version 1)
Quarter: 2025Q2

REPORT INFORMATION
  Report Type: Spontaneous
  Country: JP (occurrence: JP)
  Receive Date: 20250605
  Receipt Date: 20250605
  Transmission Date: 20250717
  Serious: No
  Sender: PFIZER
  Company Number: JP-PFIZER INC-202500114283

PATIENT

DRUGS (2)
  1. PAXLOVID [Suspect]
     Active Substance: NIRMATRELVIR\RITONAVIR
     Indication: COVID-19 treatment
     Route: 048
  2. VEKLURY [Concomitant]
     Active Substance: REMDESIVIR
     Indication: COVID-19 treatment

REACTIONS (1)
  - Inappropriate schedule of product administration [Unknown]
